FAERS Safety Report 11319435 (Version 1)
Quarter: 2015Q3

REPORT INFORMATION
  Report Type: Spontaneous
  Country: US (occurrence: None)
  Receive Date: 20150727
  Receipt Date: 20150727
  Transmission Date: 20151125
  Serious: No
  Sender: FDA-Public Use
  Company Number: None

PATIENT
  Age: 61 Year
  Sex: Male
  Weight: 123.38 kg

DRUGS (26)
  1. INVOKANA [Concomitant]
     Active Substance: CANAGLIFLOZIN
  2. FEXOFENADINE [Concomitant]
     Active Substance: FEXOFENADINE\FEXOFENADINE HYDROCHLORIDE
  3. COLCRYS [Concomitant]
     Active Substance: COLCHICINE
  4. DEPO-TESTOSTERONE [Suspect]
     Active Substance: TESTOSTERONE CYPIONATE
     Indication: HYPOGONADISM
     Dosage: INTO THE MUSCLE
  5. DEPO-TESTOSTERONE [Concomitant]
     Active Substance: TESTOSTERONE CYPIONATE
  6. IRBESARTAN. [Concomitant]
     Active Substance: IRBESARTAN
  7. D3 [Concomitant]
     Active Substance: 25-HYDROXYCHOLECALCIFEROL, 5-TRANS-
  8. ALPHA LIPOIC ACID [Concomitant]
     Active Substance: .ALPHA.-LIPOIC ACID
  9. A-PAP [Concomitant]
  10. MORPHINE SULFATE EXTENDED-RELEASE [Concomitant]
     Active Substance: MORPHINE SULFATE
  11. ANTI-OXYDANT  (VARIOUS NATURAL SOURCES) [Concomitant]
  12. NUVIGIL [Concomitant]
     Active Substance: ARMODAFINIL
  13. HYDROCODONE [Concomitant]
     Active Substance: HYDROCODONE
  14. ONETOUCH ULTRA TEST STRIP [Concomitant]
  15. HUMALOG KWIKPEN [Concomitant]
     Active Substance: INSULIN LISPRO
  16. GLUCOSAMINE [Concomitant]
     Active Substance: GLUCOSAMINE
  17. CHONDROITIN [Concomitant]
     Active Substance: CHONDROITIN
  18. DICLOFENAC SODIUM. [Concomitant]
     Active Substance: DICLOFENAC SODIUM
  19. MAGNESIUM [Concomitant]
     Active Substance: MAGNESIUM
  20. ACETYL L-CARNITINE [Concomitant]
     Active Substance: ACETYLCARNITINE
  21. LORTISONE [Concomitant]
  22. ALLOPURINOL. [Concomitant]
     Active Substance: ALLOPURINOL
  23. LANTUS SOLOSTAR INSULIN [Concomitant]
  24. BD ULTRA-FINE NANO PEN NEEDLES [Concomitant]
  25. SYNTHROID [Concomitant]
     Active Substance: LEVOTHYROXINE SODIUM
  26. MULTI-VITAMIN [Concomitant]
     Active Substance: .ALPHA.-TOCOPHEROL ACETATE, DL-\ASCORBIC ACID\CYANOCOBALAMIN\FLUORIDE ION\FOLIC ACID\NIACIN\PYRIDOXINE\RIBOFLAVIN\THIAMINE\VITAMIN A\VITAMIN D

REACTIONS (7)
  - Memory impairment [None]
  - Stress [None]
  - Drug dose omission [None]
  - Depression [None]
  - Drug withdrawal syndrome [None]
  - Asthenia [None]
  - Hot flush [None]

NARRATIVE: CASE EVENT DATE: 20150724
